FAERS Safety Report 23597656 (Version 14)
Quarter: 2024Q4

REPORT INFORMATION
  Report Type: Spontaneous
  Country: US (occurrence: US)
  Receive Date: 20240305
  Receipt Date: 20241122
  Transmission Date: 20250115
  Serious: Yes (Hospitalization)
  Sender: KARYOPHARM THERAPEUTICS
  Company Number: US-KARYOPHARM-2024KPT000622

PATIENT

DRUGS (14)
  1. XPOVIO [Suspect]
     Active Substance: SELINEXOR
     Indication: Plasma cell myeloma
     Dosage: 40 MG, WEEKLY ON DAYS 1, 8, 15, 22
     Route: 048
     Dates: start: 202309, end: 2024
  2. XPOVIO [Suspect]
     Active Substance: SELINEXOR
     Dosage: 40 MG, WEEKLY
     Route: 048
     Dates: start: 20240222, end: 20241029
  3. ACYCLOVIR [Concomitant]
     Active Substance: ACYCLOVIR
  4. DAPSONE [Concomitant]
     Active Substance: DAPSONE
  5. DEXAMETHASONE [Concomitant]
     Active Substance: DEXAMETHASONE
  6. HYDROXYZINE [Concomitant]
     Active Substance: HYDROXYZINE HYDROCHLORIDE
  7. LENALIDOMIDE [Concomitant]
     Active Substance: LENALIDOMIDE
  8. OLANZAPINE [Concomitant]
     Active Substance: OLANZAPINE
  9. ZOFRAN [Concomitant]
     Active Substance: ONDANSETRON HYDROCHLORIDE
  10. POMALYST [Concomitant]
     Active Substance: POMALIDOMIDE
  11. PROCHLORPERAZINE [Concomitant]
     Active Substance: PROCHLORPERAZINE
  12. VENTOLIN [Concomitant]
     Active Substance: ALBUTEROL SULFATE
  13. METHOCARBAMOL [Concomitant]
     Active Substance: METHOCARBAMOL
  14. OXYCODONE [Concomitant]
     Active Substance: OXYCODONE

REACTIONS (13)
  - Road traffic accident [Unknown]
  - Sternal fracture [Recovering/Resolving]
  - Pollakiuria [Unknown]
  - Depression [Unknown]
  - Cystitis [Unknown]
  - Laboratory test abnormal [Unknown]
  - Feeling abnormal [Unknown]
  - Plasma cell myeloma [Unknown]
  - Nausea [Recovered/Resolved]
  - Fatigue [Recovering/Resolving]
  - Pneumonia [Not Recovered/Not Resolved]
  - Platelet count decreased [Unknown]
  - Drug ineffective [Not Recovered/Not Resolved]

NARRATIVE: CASE EVENT DATE: 20240101
